FAERS Safety Report 7475173-7 (Version None)
Quarter: 2011Q2

REPORT INFORMATION
  Report Type: 
  Country: None (occurrence: None)
  Receive Date: 20110512
  Receipt Date: 20110414
  Transmission Date: 20111010
  Serious: Yes (Hospitalization, Other)
  Sender: FDA-Public Use
  Company Number: US-BAYER-200942162NA

PATIENT
  Age: 25 Year
  Sex: Female
  Weight: 66 kg

DRUGS (4)
  1. YASMIN [Suspect]
     Dates: start: 20070101, end: 20070615
  2. MOTRIN [Concomitant]
     Indication: PRODUCT USED FOR UNKNOWN INDICATION
  3. TIGAN [Concomitant]
  4. KARIVA [Concomitant]
     Dosage: UNK

REACTIONS (6)
  - CHOLECYSTITIS CHRONIC [None]
  - APPENDIX DISORDER [None]
  - ABDOMINAL PAIN LOWER [None]
  - CHOLESTEROSIS [None]
  - GALLBLADDER DISORDER [None]
  - BILIARY COLIC [None]
